FAERS Safety Report 14734274 (Version 1)
Quarter: 2018Q2

REPORT INFORMATION
  Report Type: Spontaneous
  Country: US (occurrence: US)
  Receive Date: 20180409
  Receipt Date: 20180409
  Transmission Date: 20180711
  Serious: Yes (Life-Threatening, Hospitalization, Other)
  Sender: FDA-Public Use
  Company Number: US-AUROBINDO-AUR-APL-2018-018373

PATIENT
  Age: 49 Year
  Sex: Female

DRUGS (11)
  1. GLOBULIN (ANTI-THYMOCYTE GLOBULIN NOS) [Suspect]
     Active Substance: THYMOCYTE IMMUNE GLOBULIN NOS
     Indication: IMMUNOSUPPRESSION
  2. ALEMTUZUMAB [Suspect]
     Active Substance: ALEMTUZUMAB
     Indication: IMMUNOSUPPRESSION
     Route: 042
  3. SIROLIMUS. [Suspect]
     Active Substance: SIROLIMUS
     Indication: IMMUNOSUPPRESSION
  4. NITAZOXANIDE [Concomitant]
     Active Substance: NITAZOXANIDE
  5. MYCOPHENOLATE [Suspect]
     Active Substance: MYCOPHENOLIC ACID
     Dosage: 500 MILLIGRAM, TWO TIMES A DAY
  6. PREDNISONE. [Suspect]
     Active Substance: PREDNISONE
     Indication: IMMUNOSUPPRESSION
     Dosage: 2.5 MILLIGRAM, DAILY
  7. METHYLPREDNISOLONE. [Suspect]
     Active Substance: METHYLPREDNISOLONE
     Indication: IMMUNOSUPPRESSION
     Route: 042
  8. MYCOPHENOLATE [Suspect]
     Active Substance: MYCOPHENOLIC ACID
     Indication: IMMUNOSUPPRESSION
     Dosage: 1000 MILLIGRAM, TWO TIMES A DAY
  9. MYCOPHENOLATE [Suspect]
     Active Substance: MYCOPHENOLIC ACID
     Dosage: 250 UNK
  10. TACROLIMUS. [Suspect]
     Active Substance: TACROLIMUS
     Indication: IMMUNOSUPPRESSION
     Dosage: 1 MILLIGRAM, TWO TIMES A DAY
  11. LOPERAMIDE [Concomitant]
     Active Substance: LOPERAMIDE

REACTIONS (10)
  - Gastroenteritis norovirus [Unknown]
  - Hypovolaemia [Unknown]
  - Pneumocystis jirovecii pneumonia [Unknown]
  - Haemodialysis [None]
  - Renal transplant [None]
  - Diarrhoea [Recovered/Resolved]
  - End stage renal disease [Recovered/Resolved]
  - Syncope [Unknown]
  - Pancreas transplant rejection [None]
  - Lipase increased [None]
